FAERS Safety Report 7016220-6 (Version None)
Quarter: 2010Q3

REPORT INFORMATION
  Report Type: 
  Country: None (occurrence: None)
  Receive Date: 20100927
  Receipt Date: 20090814
  Transmission Date: 20110219
  Serious: No
  Sender: FDA-Public Use
  Company Number: US-ASTRAZENECA-2009SE08235

PATIENT
  Age: 1032 Month
  Sex: Female

DRUGS (3)
  1. ARIMIDEX [Suspect]
     Route: 048
     Dates: start: 20090101
  2. SYNTHROID [Concomitant]
  3. SOMETHING FOR CHOLESTEROL [Concomitant]

REACTIONS (1)
  - TRICHORRHEXIS [None]
